FAERS Safety Report 23693914 (Version 1)
Quarter: 2024Q2

REPORT INFORMATION
  Report Type: Spontaneous
  Country: DE (occurrence: DE)
  Receive Date: 20240401
  Receipt Date: 20240401
  Transmission Date: 20240715
  Serious: Yes (Death, Hospitalization)
  Sender: FDA-Public Use
  Company Number: DE-GW PHARMA-201910DEGW3576

PATIENT
  Age: 29 Year
  Sex: Female
  Weight: 31 kg

DRUGS (4)
  1. VALPROIC ACID [Suspect]
     Active Substance: VALPROIC ACID
     Indication: Epilepsy
     Dosage: 1800 MG, QD (600 MG-600 MG-600 MG)
     Route: 065
     Dates: start: 2014
  2. CLOBAZAM [Suspect]
     Active Substance: CLOBAZAM
     Indication: Epilepsy
     Dosage: 10 MG, QD  (5 MG-0-5MG)
     Route: 065
     Dates: start: 20190301
  3. LEVETIRACETAM [Concomitant]
     Active Substance: LEVETIRACETAM
     Indication: Product used for unknown indication
     Dosage: 1000 MG, QD (500 MG-0-500 MG)
     Route: 065
     Dates: start: 2012
  4. LACOSAMIDE [Concomitant]
     Active Substance: LACOSAMIDE
     Indication: Product used for unknown indication
     Dosage: 200 MG, QD  (100 MG-0-100 MG)
     Route: 065
     Dates: start: 2014

REACTIONS (3)
  - Death [Fatal]
  - Respiratory tract infection [Unknown]
  - Pyrexia [Unknown]

NARRATIVE: CASE EVENT DATE: 20190901
